FAERS Safety Report 9178288 (Version 1)
Quarter: 2012Q4

REPORT INFORMATION
  Report Type: 
  Country: US (occurrence: US)
  Receive Date: 20121029
  Receipt Date: 20121029
  Transmission Date: 20130627
  Serious: Yes (Other)
  Sender: FDA-Public Use
  Company Number: US-PFIZER INC-2012269598

PATIENT

DRUGS (1)
  1. PRISTIQ [Suspect]
     Indication: DEPRESSION
     Dosage: 50 mg, UNK
     Dates: start: 201210

REACTIONS (1)
  - Agoraphobia [Unknown]
